FAERS Safety Report 10716988 (Version 4)
Quarter: 2015Q2

REPORT INFORMATION
  Report Type: Spontaneous
  Country: US (occurrence: US)
  Receive Date: 20150116
  Receipt Date: 20150608
  Transmission Date: 20150821
  Serious: No
  Sender: FDA-Public Use
  Company Number: US-PFIZER INC-2015017276

PATIENT
  Age: 71 Year
  Sex: Female

DRUGS (3)
  1. SUTENT [Suspect]
     Active Substance: SUNITINIB MALATE
     Dosage: 50 MG, 28 DAYS ON 14 DAYS OFF
     Dates: start: 201502
  2. SUTENT [Suspect]
     Active Substance: SUNITINIB MALATE
     Indication: RENAL CANCER METASTATIC
     Dosage: 50 MG, DAILY
     Dates: start: 201412, end: 201501
  3. PREDNISONE. [Concomitant]
     Active Substance: PREDNISONE
     Dosage: 10 MG, DAILY

REACTIONS (17)
  - Nausea [Recovering/Resolving]
  - Vomiting [Recovering/Resolving]
  - Skin hypertrophy [Unknown]
  - Oral pain [Recovering/Resolving]
  - Decreased appetite [Recovering/Resolving]
  - Dehydration [Recovering/Resolving]
  - Lip dry [Unknown]
  - Dysphagia [Recovering/Resolving]
  - Mucosal inflammation [Recovering/Resolving]
  - Yellow skin [Unknown]
  - Hypophagia [Recovering/Resolving]
  - Chapped lips [Unknown]
  - Asthenia [Recovering/Resolving]
  - Eyelid irritation [Unknown]
  - Weight decreased [Unknown]
  - Odynophagia [Recovering/Resolving]
  - Glossodynia [Unknown]
